FAERS Safety Report 15280695 (Version 1)
Quarter: 2018Q3

REPORT INFORMATION
  Report Type: Spontaneous
  Country: US (occurrence: US)
  Receive Date: 20180731
  Receipt Date: 20180731
  Transmission Date: 20181010
  Serious: Yes (Life-Threatening, Hospitalization)
  Sender: FDA-Public Use
  Company Number: None

PATIENT
  Age: 39 Year
  Sex: Female
  Weight: 81.65 kg

DRUGS (1)
  1. MIRENA [Suspect]
     Active Substance: LEVONORGESTREL
     Indication: CONTRACEPTION
     Dates: start: 20140815, end: 20160510

REACTIONS (6)
  - Headache [None]
  - Complication of device insertion [None]
  - Abdominal pain [None]
  - Tinnitus [None]
  - Vaginal haemorrhage [None]
  - Blood pressure increased [None]

NARRATIVE: CASE EVENT DATE: 20150815
